FAERS Safety Report 4694092-2 (Version None)
Quarter: 2005Q2

REPORT INFORMATION
  Report Type: 
  Country: None (occurrence: None)
  Receive Date: 20050617
  Receipt Date: 20050602
  Transmission Date: 20051028
  Serious: Yes (Hospitalization)
  Sender: FDA-Public Use
  Company Number: 2004S1003284

PATIENT
  Age: 63 Year
  Sex: Male
  Weight: 108.8633 kg

DRUGS (11)
  1. CLONAZEPAM [Suspect]
     Indication: PANIC ATTACK
     Dosage: 1 MG HS PO; 2 MG HS PO
     Route: 048
     Dates: start: 20040930, end: 20041012
  2. CLONAZEPAM [Suspect]
     Indication: RESTLESS LEGS SYNDROME
     Dosage: 1 MG HS PO; 2 MG HS PO
     Route: 048
     Dates: start: 20040930, end: 20041012
  3. CLONAZEPAM [Suspect]
     Indication: SLEEP DISORDER
     Dosage: 1 MG HS PO; 2 MG HS PO
     Route: 048
     Dates: start: 20040930, end: 20041012
  4. LISINOPRIL [Concomitant]
  5. FENTANYL [Concomitant]
  6. FLUOXETINE [Concomitant]
  7. ISOPHANE INSULIN [Concomitant]
  8. INSULIN [Concomitant]
  9. DOCUSATE SODIUM/SENNA [Concomitant]
  10. ALPRAZOLAM [Concomitant]
  11. TEMAZEPAM [Concomitant]

REACTIONS (17)
  - ABDOMINAL DISTENSION [None]
  - ABDOMINAL PAIN [None]
  - ABDOMINAL PAIN UPPER [None]
  - ASCITES [None]
  - CEREBRAL THROMBOSIS [None]
  - CEREBROVASCULAR ACCIDENT [None]
  - CONSTIPATION [None]
  - DIARRHOEA [None]
  - DYSPEPSIA [None]
  - HEADACHE [None]
  - HEPATIC STEATOSIS [None]
  - HEPATOCELLULAR DAMAGE [None]
  - MYOCARDIAL INFARCTION [None]
  - NIGHTMARE [None]
  - RASH [None]
  - REFUSAL OF TREATMENT BY PATIENT [None]
  - URINARY RETENTION [None]
